FAERS Safety Report 25923062 (Version 1)
Quarter: 2025Q4

REPORT INFORMATION
  Report Type: Spontaneous
  Country: US (occurrence: US)
  Receive Date: 20251015
  Receipt Date: 20251015
  Transmission Date: 20260118
  Serious: No
  Sender: CSL BEHRING
  Company Number: US-BEH-2025220843

PATIENT
  Age: 33 Year
  Sex: Female

DRUGS (2)
  1. PRIVIGEN [Suspect]
     Active Substance: HUMAN IMMUNOGLOBULIN G
     Indication: Polyneuropathy
     Dosage: 5 G
     Route: 042
     Dates: start: 202509
  2. PRIVIGEN [Suspect]
     Active Substance: HUMAN IMMUNOGLOBULIN G
     Indication: Sjogren^s syndrome
     Dosage: 40 G
     Route: 042
     Dates: start: 202509

REACTIONS (3)
  - Headache [Unknown]
  - Product supply issue [Unknown]
  - Off label use [Unknown]

NARRATIVE: CASE EVENT DATE: 20250901
